FAERS Safety Report 5726748-4 (Version None)
Quarter: 2008Q2

REPORT INFORMATION
  Report Type: 
  Country: None (occurrence: None)
  Receive Date: 20080502
  Receipt Date: 20080423
  Transmission Date: 20081010
  Serious: Yes (Other)
  Sender: FDA-Public Use
  Company Number: US-ABBOTT-08P-163-0448968-00

PATIENT
  Sex: Female
  Weight: 67.192 kg

DRUGS (11)
  1. HUMIRA [Suspect]
     Indication: CROHN'S DISEASE
     Route: 050
     Dates: start: 20080216, end: 20080417
  2. CENTRUM [Concomitant]
     Indication: DRUG USE FOR UNKNOWN INDICATION
     Route: 048
     Dates: start: 20080216, end: 20080417
  3. PLANTAGO OVATA [Concomitant]
     Indication: DRUG USE FOR UNKNOWN INDICATION
     Route: 048
     Dates: start: 20080216, end: 20080417
  4. CAFFEINE CITRATE [Concomitant]
     Indication: DRUG USE FOR UNKNOWN INDICATION
     Route: 048
     Dates: start: 20080216, end: 20080417
  5. COFFEE [Concomitant]
     Indication: DRUG USE FOR UNKNOWN INDICATION
     Route: 048
     Dates: start: 20080216, end: 20080417
  6. BEER [Concomitant]
     Indication: DRUG USE FOR UNKNOWN INDICATION
     Route: 048
     Dates: start: 20080306, end: 20080307
  7. BEER [Concomitant]
     Route: 048
     Dates: start: 20080302, end: 20080302
  8. GUAIFENESIN [Concomitant]
     Indication: HYPERSENSITIVITY
     Route: 048
     Dates: start: 20080216, end: 20080311
  9. DOCUSATE SODIUM [Concomitant]
     Indication: DRUG USE FOR UNKNOWN INDICATION
     Route: 048
     Dates: start: 20080216, end: 20080417
  10. PARACETAMOL [Concomitant]
     Indication: HEADACHE
     Route: 048
     Dates: start: 20080216, end: 20080311
  11. OTHER CHEMICAL EXPOSURE [Concomitant]
     Indication: DRUG USE FOR UNKNOWN INDICATION
     Dosage: 4 HOURS IN ONE DAY
     Route: 055
     Dates: start: 20080312, end: 20080312

REACTIONS (1)
  - ABORTION SPONTANEOUS [None]
